FAERS Safety Report 8507341-7 (Version None)
Quarter: 2012Q3

REPORT INFORMATION
  Report Type: 
  Country: None (occurrence: None)
  Receive Date: 20120712
  Receipt Date: 20120702
  Transmission Date: 20120928
  Serious: Yes (Hospitalization)
  Sender: FDA-Public Use
  Company Number: NL-BAXTER-2012BAX009492

PATIENT
  Sex: Female

DRUGS (3)
  1. KIOVIG [Suspect]
     Dosage: 1 VIAL 20G/200ML AND 1 VIAL 5G/50ML
     Route: 042
     Dates: start: 20120523, end: 20120523
  2. KIOVIG [Suspect]
     Dosage: 1 VIAL 20G/200ML AND 1 VIAL 5G/50ML
     Route: 042
     Dates: start: 20120618, end: 20120618
  3. KIOVIG [Suspect]
     Indication: MULTIPLE SCLEROSIS
     Route: 042
     Dates: start: 20091030

REACTIONS (1)
  - HAEMOGLOBIN DECREASED [None]
